FAERS Safety Report 16439134 (Version 3)
Quarter: 2019Q3

REPORT INFORMATION
  Report Type: Spontaneous
  Country: JP (occurrence: JP)
  Receive Date: 20190617
  Receipt Date: 20190703
  Transmission Date: 20191004
  Serious: Yes (Other)
  Sender: FDA-Public Use
  Company Number: JP-PFIZER INC-2019254135

PATIENT
  Age: 62 Year
  Sex: Female

DRUGS (4)
  1. LIPITOR [Suspect]
     Active Substance: ATORVASTATIN CALCIUM
     Indication: HYPERCHOLESTEROLAEMIA
     Dosage: 10 MG, ALTERNATE DAY
     Route: 048
     Dates: start: 20181001
  2. LIPITOR [Suspect]
     Active Substance: ATORVASTATIN CALCIUM
     Dosage: 10 MG/DAY, UNKNOWN FREQ.
     Route: 048
     Dates: end: 20190604
  3. CRESTOR [Concomitant]
     Active Substance: ROSUVASTATIN CALCIUM
     Dosage: UNK UNK, UNKNOWN FREQ.
     Route: 065
  4. THYRADIN [Concomitant]
     Active Substance: LEVOTHYROXINE
     Dosage: UNK UNK, UNKNOWN FREQ.
     Route: 048

REACTIONS (2)
  - Intentional product misuse [Unknown]
  - Tubulointerstitial nephritis [Unknown]
